FAERS Safety Report 15958223 (Version 1)
Quarter: 2019Q1

REPORT INFORMATION
  Report Type: Spontaneous
  Country: US (occurrence: US)
  Receive Date: 20190213
  Receipt Date: 20190213
  Transmission Date: 20190417
  Serious: No
  Sender: FDA-Public Use
  Company Number: US-NEXGEN PHARMA, INC.-2062636

PATIENT
  Age: 67 Year
  Sex: Female

DRUGS (1)
  1. CHENODAL [Suspect]
     Active Substance: CHENODIOL
     Indication: LIPID METABOLISM DISORDER
     Route: 048
     Dates: start: 20130727

REACTIONS (5)
  - Neuropathy peripheral [Unknown]
  - Mental impairment [Unknown]
  - Muscle atrophy [Unknown]
  - Fluid retention [Unknown]
  - Weight increased [Unknown]
